FAERS Safety Report 9471922 (Version 1)
Quarter: 2013Q3

REPORT INFORMATION
  Report Type: Spontaneous
  Country: DE (occurrence: DE)
  Receive Date: 20130823
  Receipt Date: 20130823
  Transmission Date: 20140515
  Serious: Yes (Other)
  Sender: FDA-Public Use
  Company Number: DE-AMGEN-DEUSP2013059064

PATIENT
  Age: 71 Year
  Sex: Male

DRUGS (9)
  1. ENBREL [Suspect]
     Indication: PSORIASIS
     Dosage: 50 MG, WEEKLY
     Route: 065
     Dates: start: 20121127
  2. BISOPROLOL [Concomitant]
     Dosage: 10 MG, UNK
  3. TORASEMIDE [Concomitant]
     Dosage: 10 MG, UNK
  4. L THYROXIN [Concomitant]
     Dosage: 100
  5. PANTOPRAZOL [Concomitant]
     Dosage: 20 MG, UNK
  6. SIMVASTATIN [Concomitant]
     Dosage: 20 MG, UNK
  7. ALLOPURINOL [Concomitant]
     Dosage: UNK
  8. LERCANIDIPINE [Concomitant]
     Dosage: 20 MG, UNK
  9. CANDESARTAN [Concomitant]
     Dosage: UNK

REACTIONS (2)
  - Dyspnoea [Not Recovered/Not Resolved]
  - Drug ineffective [Not Recovered/Not Resolved]
